FAERS Safety Report 6289117-7 (Version None)
Quarter: 2009Q3

REPORT INFORMATION
  Report Type: 
  Country: None (occurrence: None)
  Receive Date: 20090728
  Receipt Date: 20090722
  Transmission Date: 20100115
  Serious: Yes (Other)
  Sender: FDA-Public Use
  Company Number: CHPA2009US15759

PATIENT
  Age: 88 Year
  Sex: Female

DRUGS (1)
  1. VOLTAREN [Suspect]
     Indication: PAIN IN EXTREMITY
     Dosage: 2 G, ONCE/SINGLE, TOPICAL
     Route: 061
     Dates: start: 20090721, end: 20090721

REACTIONS (4)
  - DYSPNOEA [None]
  - FEELING COLD [None]
  - HYPOAESTHESIA [None]
  - PRODUCT LABEL ISSUE [None]
